FAERS Safety Report 19909915 (Version 1)
Quarter: 2021Q4

REPORT INFORMATION
  Report Type: Report from Study
  Country: GB (occurrence: GB)
  Receive Date: 20211003
  Receipt Date: 20211003
  Transmission Date: 20220303
  Serious: Yes (Hospitalization)
  Sender: FDA-Public Use
  Company Number: GB-NOVARTISPH-NVSC2021GB173558

PATIENT
  Sex: Male

DRUGS (1)
  1. HYRIMOZ [Suspect]
     Active Substance: ADALIMUMAB-ADAZ
     Indication: Rheumatoid arthritis
     Dosage: 40MG/0.8 ML, Q2W (FORTNIGHTLY)
     Route: 058

REACTIONS (7)
  - Unevaluable event [Unknown]
  - Condition aggravated [Unknown]
  - Joint swelling [Unknown]
  - Arthralgia [Unknown]
  - Swelling [Unknown]
  - Pain [Unknown]
  - Therapy non-responder [Unknown]
